FAERS Safety Report 5224867-2 (Version None)
Quarter: 2007Q1

REPORT INFORMATION
  Report Type: 
  Country: None (occurrence: None)
  Receive Date: 20070131
  Receipt Date: 20070125
  Transmission Date: 20070707
  Serious: Yes (Death)
  Sender: FDA-Public Use
  Company Number: 2006AP06197

PATIENT
  Age: 28910 Day
  Sex: Female
  Weight: 55 kg

DRUGS (5)
  1. DIPRIVAN [Suspect]
     Indication: SEDATION
     Route: 042
     Dates: start: 20061227, end: 20061229
  2. IRESSA [Suspect]
     Indication: LUNG ADENOCARCINOMA RECURRENT
     Route: 048
     Dates: start: 20061214, end: 20061225
  3. RADIATION THERAPY [Concomitant]
     Indication: LUNG NEOPLASM MALIGNANT
     Dosage: TO HILAR LYMPH NODE 60GY
     Dates: start: 20060228, end: 20060413
  4. CARBOPLATIN [Concomitant]
     Dosage: BIWEEKLY FOR 8 COURSES
     Dates: start: 20060620, end: 20061024
  5. GEMCITABINE [Concomitant]
     Dosage: BIWEEKLY FOR 8 COURSES
     Dates: start: 20060620, end: 20061024

REACTIONS (2)
  - INTERSTITIAL LUNG DISEASE [None]
  - LIVER DISORDER [None]
